FAERS Safety Report 4847712-3 (Version None)
Quarter: 2005Q4

REPORT INFORMATION
  Report Type: 
  Country: None (occurrence: None)
  Receive Date: 20051205
  Receipt Date: 20051110
  Transmission Date: 20060501
  Serious: Yes (Hospitalization)
  Sender: FDA-Public Use
  Company Number: 2005BH002833

PATIENT
  Age: 13 Year
  Sex: Female

DRUGS (2)
  1. GENTAMICIN [Suspect]
     Indication: CYSTIC FIBROSIS
     Dosage: 10 MG/KG; IV
     Route: 042
  2. CEFTAZIDIME SODIUM [Suspect]
     Indication: CYSTIC FIBROSIS
     Dosage: 2000 MG; IV
     Route: 042

REACTIONS (4)
  - BLOOD CREATININE INCREASED [None]
  - HAEMODIALYSIS [None]
  - OEDEMA [None]
  - RENAL TUBULAR NECROSIS [None]
